FAERS Safety Report 24558692 (Version 1)
Quarter: 2024Q4

REPORT INFORMATION
  Report Type: Other
  Country: DE (occurrence: DE)
  Receive Date: 20241029
  Receipt Date: 20241029
  Transmission Date: 20250114
  Serious: Yes (Hospitalization, Other)
  Sender: LUPIN
  Company Number: None

PATIENT

DRUGS (6)
  1. QUETIAPINE [Suspect]
     Active Substance: QUETIAPINE
     Indication: Bipolar disorder
     Dosage: UNK (DIFFERENT)
     Route: 048
     Dates: end: 20210601
  2. QUETIAPINE [Suspect]
     Active Substance: QUETIAPINE
     Indication: Fibromyalgia
  3. ZYPREXA [Suspect]
     Active Substance: OLANZAPINE
     Indication: Bipolar disorder
     Dosage: UNK (DIFFERENT)
     Route: 048
     Dates: end: 20210601
  4. ZYPREXA [Suspect]
     Active Substance: OLANZAPINE
     Indication: Fibromyalgia
  5. LITHIUM [Suspect]
     Active Substance: LITHIUM
     Indication: Bipolar disorder
     Dosage: UNK (DIFFERENT)
     Route: 065
     Dates: end: 20210601
  6. LITHIUM [Suspect]
     Active Substance: LITHIUM
     Indication: Fibromyalgia

REACTIONS (10)
  - Pneumonia [Not Recovered/Not Resolved]
  - Oxygen saturation decreased [Unknown]
  - Immune system disorder [Not Recovered/Not Resolved]
  - Rash [Not Recovered/Not Resolved]
  - Bedridden [Unknown]
  - Cardiac murmur [Unknown]
  - Weight bearing difficulty [Not Recovered/Not Resolved]
  - Mobility decreased [Not Recovered/Not Resolved]
  - Gait disturbance [Not Recovered/Not Resolved]
  - Decreased immune responsiveness [Not Recovered/Not Resolved]

NARRATIVE: CASE EVENT DATE: 20240810
